FAERS Safety Report 9163643 (Version 1)
Quarter: 2013Q1

REPORT INFORMATION
  Report Type: Spontaneous
  Country: US (occurrence: US)
  Receive Date: 20130314
  Receipt Date: 20130314
  Transmission Date: 20140127
  Serious: Yes (Other)
  Sender: FDA-Public Use
  Company Number: US-PFIZER INC-2013085298

PATIENT
  Age: 70 Year
  Sex: Female
  Weight: 73.9 kg

DRUGS (4)
  1. LYRICA [Suspect]
     Indication: MUSCULOSKELETAL PAIN
     Dosage: 75 MG, 3X/DAY
  2. LYRICA [Suspect]
     Indication: PAIN
     Dosage: 150 MG, 3X/DAY
     Route: 048
     Dates: start: 201302
  3. LORTAB [Concomitant]
     Indication: PAIN
     Dosage: 500/10 MG, 1X/DAY
  4. KLONOPIN [Concomitant]
     Dosage: 2 MG, 1X/DAY

REACTIONS (2)
  - Weight increased [Unknown]
  - Off label use [Unknown]
